FAERS Safety Report 25947455 (Version 1)
Quarter: 2025Q4

REPORT INFORMATION
  Report Type: Spontaneous
  Country: US (occurrence: US)
  Receive Date: 20251022
  Receipt Date: 20251022
  Transmission Date: 20260117
  Serious: Yes (Other)
  Sender: ABBVIE
  Company Number: US-ABBVIE-6511330

PATIENT
  Age: 36 Year
  Sex: Female

DRUGS (2)
  1. LILETTA [Suspect]
     Active Substance: LEVONORGESTREL
     Indication: Product used for unknown indication
     Dosage: TIME INTERVAL: AS NECESSARY: DISCONTINUED
     Route: 015
     Dates: start: 20250401, end: 202510
  2. LILETTA [Suspect]
     Active Substance: LEVONORGESTREL
     Dosage: TIME INTERVAL: AS NECESSARY
     Route: 015
     Dates: start: 202510

REACTIONS (3)
  - Uterine haemorrhage [Unknown]
  - Device dislocation [Unknown]
  - Uterine pain [Unknown]

NARRATIVE: CASE EVENT DATE: 20251015
